FAERS Safety Report 11686659 (Version 2)
Quarter: 2016Q1

REPORT INFORMATION
  Report Type: Spontaneous
  Country: US (occurrence: US)
  Receive Date: 20151030
  Receipt Date: 20160222
  Transmission Date: 20160525
  Serious: No
  Sender: FDA-Public Use
  Company Number: US-PFIZER INC-2015362121

PATIENT
  Age: 74 Year
  Sex: Female
  Weight: 84 kg

DRUGS (5)
  1. CALCIUM [Concomitant]
     Active Substance: CALCIUM
     Dosage: 500MG TABLET, DOES NOT TAKE IT EVERY DAY
     Route: 048
  2. DAXID [Suspect]
     Active Substance: SERTRALINE HYDROCHLORIDE
     Indication: DEPRESSION
     Dosage: 100 MG, DAILY
     Route: 048
     Dates: start: 201507, end: 2015
  3. DAXID [Suspect]
     Active Substance: SERTRALINE HYDROCHLORIDE
     Dosage: 100 MG DAILY
     Route: 048
     Dates: start: 2015
  4. ARMOUR THYROID [Concomitant]
     Active Substance: THYROID, PORCINE
     Dosage: 90 MG ROUND WHITE TABLET
     Route: 048
     Dates: start: 1964
  5. DAXID [Suspect]
     Active Substance: SERTRALINE HYDROCHLORIDE
     Dosage: A TABLET AND A HALF, 150MG
     Route: 048
     Dates: start: 2015, end: 2015

REACTIONS (5)
  - Product quality issue [Not Recovered/Not Resolved]
  - Extra dose administered [Recovered/Resolved]
  - Drug ineffective [Not Recovered/Not Resolved]
  - Anger [Not Recovered/Not Resolved]
  - Feeling abnormal [Not Recovered/Not Resolved]

NARRATIVE: CASE EVENT DATE: 2015
